FAERS Safety Report 5766147-2 (Version None)
Quarter: 2008Q2

REPORT INFORMATION
  Report Type: 
  Country: None (occurrence: None)
  Receive Date: 20080611
  Receipt Date: 20080530
  Transmission Date: 20081010
  Serious: Yes (Death)
  Sender: FDA-Public Use
  Company Number: CA-PFIZER INC-2008048620

PATIENT
  Age: 42 Year
  Sex: Male

DRUGS (6)
  1. DOXEPIN HCL [Suspect]
  2. DURAGESIC-100 [Suspect]
     Route: 048
  3. LORAZEPAM [Suspect]
  4. AMITRIPTYLINE HCL [Suspect]
  5. NORTRIPTYLINE HCL [Suspect]
  6. CODEINE SUL TAB [Suspect]

REACTIONS (3)
  - ACCIDENTAL OVERDOSE [None]
  - DRUG ABUSE [None]
  - DRUG TOXICITY [None]
